FAERS Safety Report 4863287-7 (Version None)
Quarter: 2005Q4

REPORT INFORMATION
  Report Type: 
  Country: None (occurrence: None)
  Receive Date: 20051219
  Receipt Date: 20051219
  Transmission Date: 20060501
  Serious: Yes (Hospitalization, Other)
  Sender: FDA-Public Use
  Company Number: None

PATIENT
  Sex: Female
  Weight: 60.2 kg

DRUGS (5)
  1. RITUXAN [Suspect]
     Indication: DIFFUSE LARGE B-CELL LYMPHOMA
     Dosage: SEE IMAGE
     Route: 042
     Dates: start: 20051108
  2. CYTOXAN [Suspect]
     Dosage: SEE IMAGE
     Route: 042
     Dates: start: 20051108
  3. DOXIL [Suspect]
     Dosage: SEE IMAGE
     Route: 042
     Dates: start: 20051108, end: 20051108
  4. VINCRISTINE [Suspect]
     Dosage: SEE IMAGE
     Route: 042
     Dates: start: 20051108
  5. PREDNISONE TAB [Suspect]
     Dosage: SEE IMAGE
     Route: 048
     Dates: start: 20051108

REACTIONS (1)
  - FEBRILE NEUTROPENIA [None]
